FAERS Safety Report 5732592-4 (Version None)
Quarter: 2008Q2

REPORT INFORMATION
  Report Type: 
  Country: None (occurrence: None)
  Receive Date: 20080507
  Receipt Date: 20080421
  Transmission Date: 20081010
  Serious: Yes (Hospitalization)
  Sender: FDA-Public Use
  Company Number: 002#2#2007-00379

PATIENT
  Age: 79 Year
  Sex: Female
  Weight: 38.5557 kg

DRUGS (7)
  1. NEUPRO [Suspect]
     Indication: PARKINSON'S DISEASE
     Dosage: SEE IMAGE
     Route: 062
     Dates: start: 20070901, end: 20071201
  2. NEUPRO [Suspect]
     Indication: PARKINSON'S DISEASE
     Dosage: SEE IMAGE
     Route: 062
     Dates: start: 20071201, end: 20080101
  3. NEUPRO [Suspect]
     Indication: PARKINSON'S DISEASE
     Dosage: SEE IMAGE
     Route: 062
     Dates: start: 20080101
  4. SINEMET [Suspect]
     Dosage: 3 IN 1 D,ORAL : 1 IN 3 D,ORAL
     Route: 048
     Dates: start: 20040101
  5. SINEMET [Suspect]
     Dosage: 3 IN 1 D,ORAL : 1 IN 3 D,ORAL
     Route: 048
     Dates: start: 20080101
  6. ENALAPRIL MALEATE [Concomitant]
  7. TRAZODONE HCL [Concomitant]

REACTIONS (17)
  - ABNORMAL BEHAVIOUR [None]
  - ANAEMIA [None]
  - ANOREXIA [None]
  - DEHYDRATION [None]
  - DRUG DOSE OMISSION [None]
  - DRUG EFFECT DECREASED [None]
  - DYSKINESIA [None]
  - FREEZING PHENOMENON [None]
  - IRON DEFICIENCY [None]
  - LUNG DISORDER [None]
  - MALNUTRITION [None]
  - MOBILITY DECREASED [None]
  - NASOPHARYNGITIS [None]
  - PAIN [None]
  - PSYCHOMOTOR HYPERACTIVITY [None]
  - THERAPEUTIC RESPONSE UNEXPECTED WITH DRUG SUBSTITUTION [None]
  - TREMOR [None]
